FAERS Safety Report 10881967 (Version 1)
Quarter: 2015Q1

REPORT INFORMATION
  Report Type: Spontaneous
  Country: None (occurrence: None)
  Receive Date: 20150226
  Receipt Date: 20150226
  Transmission Date: 20150721
  Serious: Yes (Life-Threatening)
  Sender: FDA-Public Use
  Company Number: None

PATIENT
  Age: 47 Year
  Sex: Female
  Weight: 116.58 kg

DRUGS (2)
  1. OXALIPLATIN 50MG/10ML HOSPIRA [Suspect]
     Active Substance: OXALIPLATIN
     Indication: CHEMOTHERAPY
     Dates: start: 20150204
  2. OXALIPLATIN. [Concomitant]
     Active Substance: OXALIPLATIN

REACTIONS (4)
  - Nausea [None]
  - Flushing [None]
  - Dizziness [None]
  - Abdominal discomfort [None]

NARRATIVE: CASE EVENT DATE: 20150213
